FAERS Safety Report 4717130-7 (Version None)
Quarter: 2005Q3

REPORT INFORMATION
  Report Type: 
  Country: None (occurrence: None)
  Receive Date: 20050719
  Receipt Date: 20050325
  Transmission Date: 20060218
  Serious: Yes (Other)
  Sender: FDA-Public Use
  Company Number: US-GLAXOSMITHKLINE-A0551252A

PATIENT
  Age: 28 Year
  Sex: Female
  Weight: 95 kg

DRUGS (14)
  1. PAXIL [Suspect]
     Indication: DRUG USE FOR UNKNOWN INDICATION
  2. WELLBUTRIN [Suspect]
     Indication: DRUG USE FOR UNKNOWN INDICATION
     Route: 048
  3. TRAZODONE HCL [Concomitant]
     Route: 048
  4. RISPERDAL [Concomitant]
     Route: 048
  5. COGENTIN [Concomitant]
     Dosage: 2MG TWICE PER DAY
     Route: 048
  6. UNKNOWN MEDICATION [Concomitant]
     Dates: start: 20050101
  7. VITAMIN B-12 [Concomitant]
     Dates: start: 20020101
  8. MULTI-VITAMIN [Concomitant]
  9. ASCORBIC ACID [Concomitant]
  10. MAGNESIUM [Concomitant]
  11. IRON [Concomitant]
  12. CALCIUM GLUCONATE [Concomitant]
  13. VITAMIN E [Concomitant]
  14. COLACE [Concomitant]
     Dates: start: 20020101

REACTIONS (2)
  - VISION BLURRED [None]
  - VISUAL ACUITY REDUCED [None]
